FAERS Safety Report 8833215 (Version 2)
Quarter: 2014Q2

REPORT INFORMATION
  Report Type: Report from Study
  Country: MX (occurrence: MX)
  Receive Date: 20121010
  Receipt Date: 20140120
  Transmission Date: 20141212
  Serious: Yes (Death, Hospitalization)
  Sender: FDA-Public Use
  Company Number: PHHY2011MX40334

PATIENT
  Age: 77 Year
  Sex: Female

DRUGS (2)
  1. EXFORGE [Suspect]
     Dosage: 01 DF (160/5 MG)
     Dates: start: 201009
  2. EXFORGE [Suspect]
     Dosage: 0.5 DF (160/5 MG)
     Dates: start: 20110501

REACTIONS (4)
  - Death [Fatal]
  - Malaise [Not Recovered/Not Resolved]
  - Blood pressure decreased [Unknown]
  - Wrong technique in drug usage process [Unknown]
